FAERS Safety Report 9315428 (Version 2)
Quarter: 2013Q2

REPORT INFORMATION
  Report Type: Report from Study
  Country: US (occurrence: US)
  Receive Date: 20130529
  Receipt Date: 20130625
  Transmission Date: 20140414
  Serious: Yes (Hospitalization)
  Sender: FDA-Public Use
  Company Number: US-US-EMD SERONO, INC.-7148802

PATIENT
  Age: 54 Year
  Sex: Female
  Weight: 99 kg

DRUGS (2)
  1. REBIF [Suspect]
     Indication: MULTIPLE SCLEROSIS
     Route: 058
     Dates: start: 20120613, end: 201207
  2. REBIF [Suspect]
     Route: 058
     Dates: start: 201207, end: 20120713

REACTIONS (5)
  - Uterine leiomyoma [Recovered/Resolved]
  - Cough [Unknown]
  - Epistaxis [Unknown]
  - Eye pain [Unknown]
  - Hormone level abnormal [Unknown]
